FAERS Safety Report 5485721-4 (Version None)
Quarter: 2007Q4

REPORT INFORMATION
  Report Type: 
  Country: None (occurrence: None)
  Receive Date: 20071015
  Receipt Date: 20071004
  Transmission Date: 20080405
  Serious: Yes (Life-Threatening, Hospitalization)
  Sender: FDA-Public Use
  Company Number: FR-ROCHE-523251

PATIENT
  Age: 42 Week
  Sex: Male
  Weight: 9.4 kg

DRUGS (4)
  1. RIVOTRIL [Suspect]
     Indication: DRUG USE FOR UNKNOWN INDICATION
     Route: 048
     Dates: start: 20070809, end: 20070809
  2. SUBUTEX [Suspect]
     Indication: DRUG USE FOR UNKNOWN INDICATION
     Route: 048
     Dates: start: 20070809, end: 20070809
  3. 1 CONCOMITANT DRUG [Concomitant]
     Dosage: DRUG: PREVENAR
  4. DOLIPRANE [Concomitant]

REACTIONS (5)
  - ACIDOSIS [None]
  - COORDINATION ABNORMAL [None]
  - DYSKINESIA [None]
  - MIOSIS [None]
  - SOMNOLENCE [None]
